FAERS Safety Report 5608095-4 (Version None)
Quarter: 2008Q1

REPORT INFORMATION
  Report Type: 
  Country: None (occurrence: None)
  Receive Date: 20080126
  Receipt Date: 20080126
  Transmission Date: 20080703
  Serious: No
  Sender: FDA-Public Use
  Company Number: None

PATIENT
  Sex: Female
  Weight: 58.9676 kg

DRUGS (1)
  1. CREST PRO HEALTH MOUTHWASH [Suspect]

REACTIONS (2)
  - MEDICATION RESIDUE [None]
  - TOOTH DISCOLOURATION [None]
